FAERS Safety Report 11259689 (Version 2)
Quarter: 2015Q3

REPORT INFORMATION
  Report Type: Spontaneous
  Country: TN (occurrence: TN)
  Receive Date: 20150710
  Receipt Date: 20150817
  Transmission Date: 20151125
  Serious: Yes (Other)
  Sender: FDA-Public Use
  Company Number: TN-BRISTOL-MYERS SQUIBB COMPANY-BMS-2015-046382

PATIENT
  Age: 29 Year
  Sex: Male

DRUGS (1)
  1. DIDANOSINE. [Suspect]
     Active Substance: DIDANOSINE
     Indication: HIV INFECTION
     Dosage: UNK
     Route: 065
     Dates: start: 1999

REACTIONS (3)
  - Hypertriglyceridaemia [Unknown]
  - Hypercholesterolaemia [Unknown]
  - Acute coronary syndrome [Recovered/Resolved]
